FAERS Safety Report 4507889-6 (Version None)
Quarter: 2004Q4

REPORT INFORMATION
  Report Type: 
  Country: None (occurrence: None)
  Receive Date: 20041123
  Receipt Date: 20041029
  Transmission Date: 20050328
  Serious: Yes (Hospitalization, Disabling)
  Sender: FDA-Public Use
  Company Number: US-MERCK-0411USA00039

PATIENT
  Age: 55 Year
  Sex: Male

DRUGS (11)
  1. VIOXX [Suspect]
     Indication: ARTHRITIS
     Route: 048
     Dates: start: 20001025, end: 20030620
  2. VIOXX [Suspect]
     Route: 048
     Dates: start: 20001025, end: 20030620
  3. VIOXX [Suspect]
     Indication: ARTHRALGIA
     Route: 048
     Dates: start: 20001025, end: 20030620
  4. VIOXX [Suspect]
     Route: 048
     Dates: start: 20001025, end: 20030620
  5. LIPITOR [Concomitant]
     Route: 065
  6. TOPROL-XL [Concomitant]
     Route: 065
  7. ZOLOFT [Concomitant]
     Route: 065
  8. LISINOPRIL [Concomitant]
     Route: 065
  9. PLAVIX [Concomitant]
     Route: 065
  10. TRICOR [Concomitant]
     Route: 065
  11. ASPIRIN [Concomitant]
     Route: 065

REACTIONS (3)
  - CORONARY ARTERY OCCLUSION [None]
  - HEART INJURY [None]
  - MYOCARDIAL INFARCTION [None]
